FAERS Safety Report 7441146-3 (Version None)
Quarter: 2011Q2

REPORT INFORMATION
  Report Type: 
  Country: None (occurrence: None)
  Receive Date: 20110428
  Receipt Date: 20110308
  Transmission Date: 20111010
  Serious: Yes (Hospitalization)
  Sender: FDA-Public Use
  Company Number: US-BIOGENIDEC-2011BI008722

PATIENT
  Age: 48 Year
  Sex: Female
  Weight: 104 kg

DRUGS (2)
  1. TYSABRI [Suspect]
     Indication: MULTIPLE SCLEROSIS
     Route: 042
     Dates: start: 20080501, end: 20100901
  2. TYSABRI [Suspect]
     Route: 042
     Dates: start: 20110101

REACTIONS (8)
  - ASTHENIA [None]
  - FATIGUE [None]
  - DYSSTASIA [None]
  - MUSCLE SPASMS [None]
  - MUSCULAR WEAKNESS [None]
  - CHOLECYSTITIS INFECTIVE [None]
  - GAIT DISTURBANCE [None]
  - BALANCE DISORDER [None]
